FAERS Safety Report 25752943 (Version 1)
Quarter: 2025Q3

REPORT INFORMATION
  Report Type: Report from Study
  Country: CN (occurrence: CN)
  Receive Date: 20250902
  Receipt Date: 20250902
  Transmission Date: 20251020
  Serious: Yes (Other)
  Sender: ELI LILLY AND COMPANY
  Company Number: CN-ELI_LILLY_AND_COMPANY-CN202508020499

PATIENT
  Age: 64 Year
  Sex: Female

DRUGS (7)
  1. RETEVMO [Suspect]
     Active Substance: SELPERCATINIB
     Indication: Lung neoplasm malignant
     Route: 048
  2. RETEVMO [Suspect]
     Active Substance: SELPERCATINIB
     Route: 048
  3. PEMETREXED [Suspect]
     Active Substance: PEMETREXED
     Indication: Lung neoplasm malignant
     Route: 041
  4. CISPLATIN [Concomitant]
     Active Substance: CISPLATIN
     Indication: Lung neoplasm malignant
     Dates: start: 20250708
  5. CISPLATIN [Concomitant]
     Active Substance: CISPLATIN
  6. CISPLATIN [Concomitant]
     Active Substance: CISPLATIN
     Dates: start: 20250709
  7. BEVACIZUMAB [Concomitant]
     Active Substance: BEVACIZUMAB
     Indication: Lung neoplasm malignant
     Dates: start: 20250709

REACTIONS (13)
  - Gastrointestinal haemorrhage [Recovering/Resolving]
  - Malignant neoplasm progression [Unknown]
  - Malnutrition [Unknown]
  - Brain oedema [Unknown]
  - Asphyxia [Unknown]
  - Hyponatraemia [Unknown]
  - Type 2 diabetes mellitus [Unknown]
  - Hypocalcaemia [Unknown]
  - Hypoproteinaemia [Unknown]
  - Dyspnoea [Unknown]
  - Dizziness [Unknown]
  - Headache [Unknown]
  - Platelet count decreased [Recovering/Resolving]

NARRATIVE: CASE EVENT DATE: 20250711
